FAERS Safety Report 9885342 (Version 1)
Quarter: 2014Q1

REPORT INFORMATION
  Report Type: Spontaneous
  Country: US (occurrence: US)
  Receive Date: 20140210
  Receipt Date: 20140210
  Transmission Date: 20141002
  Serious: No
  Sender: FDA-Public Use
  Company Number: US-PFIZER INC-2014035849

PATIENT
  Age: 60 Year
  Sex: Female
  Weight: 71.2 kg

DRUGS (18)
  1. LYRICA [Suspect]
     Indication: FIBROMYALGIA
     Dosage: UNK
  2. CHANTIX [Suspect]
     Indication: SMOKING CESSATION THERAPY
     Dosage: UNK
     Route: 048
  3. CYMBALTA [Concomitant]
     Indication: ANXIETY
     Dosage: 90 MG, DAILY
  4. CYMBALTA [Concomitant]
     Indication: PANIC ATTACK
  5. CLONIDINE [Concomitant]
     Indication: DEPRESSION
     Dosage: 2 MG, 3X/DAY
  6. CLONIDINE [Concomitant]
     Indication: BIPOLAR DISORDER
  7. NEXIUM [Concomitant]
     Indication: GASTROOESOPHAGEAL REFLUX DISEASE
     Dosage: UNK, DAILY
  8. LASIX [Concomitant]
     Dosage: 40 MG, DAILY
  9. CALCIUM [Concomitant]
     Indication: SUPPLEMENTATION THERAPY
     Dosage: 40 MG, 2X/DAY
  10. SOMA [Concomitant]
     Indication: BACK DISORDER
     Dosage: 250 MG, 3X/DAY
  11. SOMA [Concomitant]
     Indication: MUSCLE DISORDER
  12. PERCOCET [Concomitant]
     Indication: BACK PAIN
     Dosage: UNK, 3X/DAY
  13. LACTULOSE [Concomitant]
     Dosage: UNK
  14. SENTRY SENIOR [Concomitant]
     Dosage: UNK
  15. LUNESTA [Concomitant]
     Indication: SLEEP DISORDER
     Dosage: 10 MG, DAILY
  16. VALTREX [Concomitant]
     Indication: HERPES ZOSTER
     Dosage: 500 MG, DAILY
  17. IBUPROFEN [Concomitant]
     Indication: HEADACHE
     Dosage: 600 MG, UNK
  18. OXYCODONE [Concomitant]
     Dosage: UNK

REACTIONS (1)
  - Influenza [Not Recovered/Not Resolved]
